FAERS Safety Report 8489115-9 (Version None)
Quarter: 2012Q3

REPORT INFORMATION
  Report Type: 
  Country: None (occurrence: None)
  Receive Date: 20120705
  Receipt Date: 20120626
  Transmission Date: 20120928
  Serious: Yes (Death)
  Sender: FDA-Public Use
  Company Number: IN-SANOFI-AVENTIS-2012SA046103

PATIENT
  Age: 72 Year
  Sex: Female

DRUGS (2)
  1. TAXOTERE [Suspect]
     Indication: BREAST CANCER
     Route: 042
     Dates: start: 20120508, end: 20120508
  2. TAXOTERE [Suspect]
     Route: 042
     Dates: start: 20120620, end: 20120620

REACTIONS (5)
  - BACK PAIN [None]
  - HYPOTENSION [None]
  - BRADYCARDIA [None]
  - RESTLESSNESS [None]
  - PAIN [None]
